FAERS Safety Report 13571197 (Version 1)
Quarter: 2017Q2

REPORT INFORMATION
  Report Type: Spontaneous
  Country: US (occurrence: US)
  Receive Date: 20170522
  Receipt Date: 20170522
  Transmission Date: 20170830
  Serious: No
  Sender: FDA-Public Use
  Company Number: None

PATIENT
  Age: 54 Year
  Sex: Male

DRUGS (1)
  1. SPRYCEL [Suspect]
     Active Substance: DASATINIB
     Indication: CHRONIC MYELOID LEUKAEMIA
     Dosage: 100MG 1 QD ORAL
     Route: 048
     Dates: start: 20160613

REACTIONS (2)
  - Erythema [None]
  - Nipple pain [None]

NARRATIVE: CASE EVENT DATE: 20161222
